FAERS Safety Report 22639427 (Version 1)
Quarter: 2023Q2

REPORT INFORMATION
  Report Type: Spontaneous
  Country: CA (occurrence: CA)
  Receive Date: 20230626
  Receipt Date: 20230626
  Transmission Date: 20230721
  Serious: Yes (Other)
  Sender: FDA-Public Use
  Company Number: CA-CELLTRION INC.-2023CA003498

PATIENT

DRUGS (3)
  1. INFLECTRA [Suspect]
     Active Substance: INFLIXIMAB-DYYB
     Indication: Colitis ulcerative
     Dosage: 400 MG (5 MG/KG), WEEK 0 FIRST INFUSION, (MAINTENANCE EVERY 6 WEEKS)
     Route: 042
     Dates: start: 20230505
  2. INFLECTRA [Suspect]
     Active Substance: INFLIXIMAB-DYYB
     Dosage: 400 MG (5 MG/KG), WEEK 0 FIRST INFUSION, (MAINTENANCE EVERY 6 WEEKS)
     Route: 042
     Dates: start: 20230505
  3. INFLECTRA [Suspect]
     Active Substance: INFLIXIMAB-DYYB
     Dosage: 390MG, EVERY 6 WEEKS
     Route: 042
     Dates: start: 20230616

REACTIONS (3)
  - Neck pain [Not Recovered/Not Resolved]
  - Hypoaesthesia [Not Recovered/Not Resolved]
  - Off label use [Unknown]

NARRATIVE: CASE EVENT DATE: 20230501
